FAERS Safety Report 6034732-9 (Version None)
Quarter: 2009Q1

REPORT INFORMATION
  Report Type: 
  Country: None (occurrence: None)
  Receive Date: 20090109
  Receipt Date: 20090109
  Transmission Date: 20090719
  Serious: No
  Sender: FDA-Public Use
  Company Number: None

PATIENT
  Sex: Female

DRUGS (7)
  1. ZOMETA [Suspect]
     Indication: BREAST CANCER
     Dosage: 4 MG MONTHLY IV
     Route: 042
     Dates: start: 20011101, end: 20030301
  2. ADRIAMYCIN PFS [Concomitant]
  3. TAXOL [Concomitant]
  4. CYTOXAN [Concomitant]
  5. RADIATION [Concomitant]
  6. AMARYL [Concomitant]
  7. DIOVAN [Concomitant]

REACTIONS (1)
  - JAW DISORDER [None]
